FAERS Safety Report 4523008-4 (Version None)
Quarter: 2004Q4

REPORT INFORMATION
  Report Type: 
  Country: None (occurrence: None)
  Receive Date: 20041207
  Receipt Date: 20041207
  Transmission Date: 20050328
  Serious: Yes (Other)
  Sender: FDA-Public Use
  Company Number: None

PATIENT
  Sex: Female
  Weight: 90.7194 kg

DRUGS (1)
  1. VIOXX [Suspect]
     Indication: SPINAL COMPRESSION FRACTURE
     Dosage: ONE DAILY
     Dates: start: 20010218, end: 20041015

REACTIONS (2)
  - HAEMORRHAGE [None]
  - VEIN PAIN [None]
